FAERS Safety Report 14376151 (Version 1)
Quarter: 2018Q1

REPORT INFORMATION
  Report Type: Spontaneous
  Country: FR (occurrence: FR)
  Receive Date: 20180111
  Receipt Date: 20180111
  Transmission Date: 20180509
  Serious: Yes (Hospitalization)
  Sender: FDA-Public Use
  Company Number: FR-TEVA-2018-FR-845804

PATIENT
  Age: 65 Year
  Sex: Female

DRUGS (33)
  1. OXALIPLATIN. [Suspect]
     Active Substance: OXALIPLATIN
     Dosage: 60 ML/H
     Route: 041
  2. AVASTIN [Suspect]
     Active Substance: BEVACIZUMAB
     Dosage: 12 CYCLES OF FOLFOX-BEVACIZUMAB
     Route: 041
     Dates: start: 201503, end: 201509
  3. FOLINIC ACID [Concomitant]
     Active Substance: LEUCOVORIN
     Dosage: 12 CYCLES OF FOLFOX-BEVACIZUMAB
     Route: 065
     Dates: start: 201503, end: 201509
  4. FLUOROURACIL. [Concomitant]
     Active Substance: FLUOROURACIL
     Dosage: 12 CYCLES OF FOLFOX-BEVACIZUMAB
     Route: 065
     Dates: start: 201503, end: 201509
  5. FLUOROURACIL. [Concomitant]
     Active Substance: FLUOROURACIL
     Dosage: 2 CYCLES OF LV5FU2-BEVACIZUMAB
     Route: 065
     Dates: start: 201408, end: 201412
  6. AVASTIN [Suspect]
     Active Substance: BEVACIZUMAB
     Dosage: CYCLE 1 OF LV5FU2-BEVACIZUMAB
     Route: 041
     Dates: start: 20171009
  7. FOLINIC ACID [Concomitant]
     Active Substance: LEUCOVORIN
     Indication: ADENOCARCINOMA OF COLON
     Dosage: 4 CYCLES OF FOLFOX-BEVACIZUMAB CHEMOTHERAPY
     Route: 065
     Dates: start: 20170703, end: 20170814
  8. FOLINIC ACID [Concomitant]
     Active Substance: LEUCOVORIN
     Dosage: 2 CYCLES OF LV5FU2-BEVACIZUMAB
     Route: 065
     Dates: start: 201408, end: 201412
  9. FOLINIC ACID [Concomitant]
     Active Substance: LEUCOVORIN
     Dosage: 12 CYCLES OF FOLFOX
     Route: 065
     Dates: start: 201301, end: 201307
  10. FLUOROURACIL. [Concomitant]
     Active Substance: FLUOROURACIL
     Indication: ADENOCARCINOMA OF COLON
     Dosage: CYCLE 5 DAY 1 FOLFOX (WITHOUT BEVACIZUMAB
     Route: 065
     Dates: start: 20170828
  11. FLUOROURACIL. [Concomitant]
     Active Substance: FLUOROURACIL
     Dosage: CYCLE 6 DAY 1 FOLFOX-BEVACIZUMAB
     Route: 065
     Dates: start: 20170926
  12. OXALIPLATIN. [Suspect]
     Active Substance: OXALIPLATIN
     Dosage: 12 CYCLES OF FOLFOX
     Route: 041
     Dates: start: 201301, end: 201307
  13. AVASTIN [Suspect]
     Active Substance: BEVACIZUMAB
     Indication: ADENOCARCINOMA OF COLON
     Dosage: CYCLE 2 OF LV5FU2-BEVACIZUMAB
     Route: 041
     Dates: start: 20171023
  14. AVASTIN [Suspect]
     Active Substance: BEVACIZUMAB
     Dosage: 29 CYCLE AS MONOTHERAPY
     Route: 041
     Dates: start: 20151202, end: 20170607
  15. AVASTIN [Suspect]
     Active Substance: BEVACIZUMAB
     Dosage: 10 CYCLES OF FOLFIRI-BEVACIZUMAB
     Route: 041
     Dates: start: 201408, end: 201412
  16. FLUOROURACIL. [Concomitant]
     Active Substance: FLUOROURACIL
     Dosage: 10 CYCLES OF FOLFIRI-BEVACIZUMAB
     Route: 065
     Dates: start: 201408, end: 201412
  17. OXALIPLATIN. [Suspect]
     Active Substance: OXALIPLATIN
     Dosage: CYCLE 6 DAY 1 FOLFOX-BEVACIZUMAB
     Route: 041
     Dates: start: 20170926
  18. AVASTIN [Suspect]
     Active Substance: BEVACIZUMAB
     Dosage: 2 CYCLES OF LV5FU2-BEVACIZUMAB
     Route: 041
     Dates: start: 201408, end: 201412
  19. FOLINIC ACID [Concomitant]
     Active Substance: LEUCOVORIN
     Dosage: CYCLE 5 DAY 1 FOLFOX (WITHOUT BEVACIZUMAB)
     Route: 065
     Dates: start: 20170828
  20. OXALIPLATIN. [Suspect]
     Active Substance: OXALIPLATIN
     Dosage: CYCLE 5 DAY 1 FOLFOX (WITHOUT BEVACIZUMAB)
     Route: 041
     Dates: start: 20170828
  21. AVASTIN [Suspect]
     Active Substance: BEVACIZUMAB
     Route: 041
  22. AVASTIN [Suspect]
     Active Substance: BEVACIZUMAB
     Dosage: 3 CYCLES OF CAPECITABINE-BEVACIZUMAB
     Route: 041
     Dates: start: 20150930, end: 20151112
  23. AVASTIN [Suspect]
     Active Substance: BEVACIZUMAB
     Dosage: 4 CYCLES FOLFOX-BEVACIZUMAB CHEMOTHERAPY
     Route: 041
     Dates: start: 20170703, end: 20170814
  24. FOLINIC ACID [Concomitant]
     Active Substance: LEUCOVORIN
     Dosage: LV5FU2-BEVACIZUMAB
     Route: 065
     Dates: start: 20171009
  25. FLUOROURACIL. [Concomitant]
     Active Substance: FLUOROURACIL
     Dosage: 4 CYCLES OF FOLFOX-BEVACIZUMAB CHEMOTHERAPY
     Route: 065
     Dates: start: 20170703, end: 20170814
  26. FLUOROURACIL. [Concomitant]
     Active Substance: FLUOROURACIL
     Dosage: 12 CYCLES OF FOLFOX
     Route: 065
     Dates: start: 201301, end: 201307
  27. OXALIPLATIN. [Suspect]
     Active Substance: OXALIPLATIN
     Dosage: FOLFOX-BEVACIZUMAB CHEMOTHERAPY CYCLE 1-4
     Route: 041
     Dates: start: 20170703, end: 20170814
  28. FOLINIC ACID [Concomitant]
     Active Substance: LEUCOVORIN
     Dosage: CYCLE 2 OF LV5FU2-BEVACIZUMAB
     Route: 065
     Dates: start: 20171023
  29. FLUOROURACIL. [Concomitant]
     Active Substance: FLUOROURACIL
     Dosage: CYCLE 2 OF LV5FU2-BEVACIZUMAB.
     Route: 065
     Dates: start: 20171023
  30. OXALIPLATIN. [Suspect]
     Active Substance: OXALIPLATIN
     Indication: ADENOCARCINOMA OF COLON
     Dosage: 12 CYCLES OF FOLFOX-BEVACIZUMAB
     Route: 041
     Dates: start: 201503, end: 201509
  31. FOLINIC ACID [Concomitant]
     Active Substance: LEUCOVORIN
     Dosage: CYCLE 6 DAY 1 FOLFOX-BEVACIZUMAB
     Route: 065
     Dates: start: 20170926
  32. FLUOROURACIL. [Concomitant]
     Active Substance: FLUOROURACIL
     Dosage: LV5FU2-BEVACIZUMAB
     Route: 065
     Dates: start: 20171009
  33. DEXAMETHASONE. [Concomitant]
     Active Substance: DEXAMETHASONE

REACTIONS (9)
  - Malaise [Recovered/Resolved]
  - Face oedema [Recovered/Resolved]
  - Erythema [Recovered/Resolved]
  - Throat tightness [Recovered/Resolved]
  - Paraesthesia [Recovered/Resolved]
  - Hypertension [Not Recovered/Not Resolved]
  - Proteinuria [Not Recovered/Not Resolved]
  - Feeling hot [Recovered/Resolved]
  - Vomiting [Recovered/Resolved]

NARRATIVE: CASE EVENT DATE: 20170731
